FAERS Safety Report 25173395 (Version 1)
Quarter: 2025Q2

REPORT INFORMATION
  Report Type: Spontaneous
  Country: CN (occurrence: CN)
  Receive Date: 20250408
  Receipt Date: 20250408
  Transmission Date: 20250716
  Serious: Yes (Disabling, Other)
  Sender: GE HEALTHCARE
  Company Number: CN-GE HEALTHCARE-2025CSU004149

PATIENT
  Age: 68 Year
  Sex: Female
  Weight: 60 kg

DRUGS (6)
  1. OMNIPAQUE [Suspect]
     Active Substance: IOHEXOL
     Indication: Diagnostic procedure
     Route: 013
     Dates: start: 20250312, end: 20250312
  2. UROKINASE [Concomitant]
     Active Substance: UROKINASE
     Indication: Cerebral infarction
     Route: 013
     Dates: start: 20250312, end: 20250312
  3. SODIUM CHLORIDE [Concomitant]
     Active Substance: SODIUM CHLORIDE
     Indication: Vehicle solution use
     Route: 041
     Dates: start: 20250312, end: 20250312
  4. CALCIUM CHLORIDE\POTASSIUM CHLORIDE\SODIUM CHLORIDE [Concomitant]
     Active Substance: CALCIUM CHLORIDE\POTASSIUM CHLORIDE\SODIUM CHLORIDE
     Indication: Vehicle solution use
     Route: 041
     Dates: start: 20250312, end: 20250312
  5. TIROFIBAN HYDROCHLORIDE [Concomitant]
     Active Substance: TIROFIBAN HYDROCHLORIDE
     Indication: Cerebral infarction
     Route: 042
     Dates: start: 20250312, end: 20250312
  6. POTASSIUM CHLORIDE [Concomitant]
     Active Substance: POTASSIUM CHLORIDE
     Indication: Hypokalaemia
     Route: 041
     Dates: start: 20250312, end: 20250312

REACTIONS (1)
  - Renal failure [Recovering/Resolving]

NARRATIVE: CASE EVENT DATE: 20250313
